FAERS Safety Report 20210049 (Version 2)
Quarter: 2022Q1

REPORT INFORMATION
  Report Type: Spontaneous
  Country: HU (occurrence: HU)
  Receive Date: 20211221
  Receipt Date: 20220103
  Transmission Date: 20220423
  Serious: Yes (Other)
  Sender: FDA-Public Use
  Company Number: HU-TEVA-2021-HU-1987905

PATIENT
  Age: 65 Year
  Sex: Male

DRUGS (1)
  1. ACYCLOVIR [Suspect]
     Active Substance: ACYCLOVIR
     Indication: Necrotising retinitis
     Route: 042

REACTIONS (1)
  - Renal impairment [Recovered/Resolved]
